FAERS Safety Report 8552734-5 (Version None)
Quarter: 2012Q3

REPORT INFORMATION
  Report Type: 
  Country: None (occurrence: None)
  Receive Date: 20120731
  Receipt Date: 20120719
  Transmission Date: 20120928
  Serious: Yes (Other)
  Sender: FDA-Public Use
  Company Number: US-MYLANLABS-2012S1014768

PATIENT
  Sex: Female

DRUGS (6)
  1. FENTANYL-100 [Suspect]
     Dosage: Q72H
     Route: 062
  2. LORAZEPAM [Concomitant]
     Indication: ANXIETY
     Route: 048
  3. FENTANYL-100 [Suspect]
     Indication: PAIN IN EXTREMITY
     Dosage: Q72H
     Route: 062
  4. FENTANYL-100 [Suspect]
     Dosage: Q72H
     Route: 062
  5. FENTANYL-100 [Suspect]
     Dosage: Q72H
     Route: 062
  6. RITALIN [Suspect]
     Indication: VIITH NERVE PARALYSIS
     Route: 048
     Dates: start: 20110101

REACTIONS (3)
  - NEPHROLITHIASIS [None]
  - PANCREATITIS [None]
  - CHOLELITHIASIS [None]
